FAERS Safety Report 23556872 (Version 1)
Quarter: 2024Q1

REPORT INFORMATION
  Report Type: Spontaneous
  Country: PL (occurrence: PL)
  Receive Date: 20240223
  Receipt Date: 20240223
  Transmission Date: 20240410
  Serious: Yes (Other)
  Sender: FDA-Public Use
  Company Number: None

PATIENT
  Age: 84 Year
  Sex: Male
  Weight: 80 kg

DRUGS (3)
  1. VANCOMYCIN [Suspect]
     Active Substance: VANCOMYCIN
     Indication: Vascular device infection
     Route: 042
     Dates: start: 20190629, end: 20190712
  2. GENTAMICIN [Suspect]
     Active Substance: GENTAMICIN
     Indication: Vascular device infection
     Route: 042
     Dates: start: 20190710, end: 20190715
  3. MEROPENEM [Concomitant]
     Active Substance: MEROPENEM
     Indication: Vascular device infection
     Dosage: MEROPENEM
     Route: 065
     Dates: start: 20190701

REACTIONS (1)
  - Acute kidney injury [Recovering/Resolving]

NARRATIVE: CASE EVENT DATE: 20190715
